FAERS Safety Report 11300883 (Version 1)
Quarter: 2015Q2

REPORT INFORMATION
  Report Type: Spontaneous
  Country: US (occurrence: None)
  Receive Date: 20150625
  Receipt Date: 20150625
  Transmission Date: 20150821
  Serious: No
  Sender: FDA-Public Use
  Company Number: A-NJ2014-105690

PATIENT
  Age: 76 Year
  Sex: Female

DRUGS (18)
  1. METOPROLOL (METOPROLOL) [Concomitant]
     Active Substance: METOPROLOL
  2. COMBIVENT RESPIMAT (IPRATROPIUM BROMIDE, SALBUTAMOL SULFATE) [Concomitant]
  3. ASPIRIN (ACETYLSALICYLIC ACID) [Concomitant]
     Active Substance: ASPIRIN
  4. ADVAIR DISKUS [Concomitant]
     Active Substance: FLUTICASONE PROPIONATE\SALMETEROL XINAFOATE
  5. CALCIUM (CALCIUM GLUCONATE) [Concomitant]
  6. MAGNESIUM (ALUMINIUM HYDROXIDE, MAGNESIUM HYDROXIDE) [Concomitant]
  7. OPSUMIT [Suspect]
     Active Substance: MACITENTAN
     Indication: PULMONARY ARTERIAL HYPERTENSION
     Route: 048
     Dates: start: 20140812, end: 201409
  8. PRAVASTATIN [Concomitant]
     Active Substance: PRAVASTATIN\PRAVASTATIN SODIUM
  9. PREDNISONE (PREDNISONE) [Concomitant]
     Active Substance: PREDNISONE
  10. SPIRIVA [Concomitant]
     Active Substance: TIOTROPIUM BROMIDE MONOHYDRATE
  11. VITAMIN E [Concomitant]
     Active Substance: .ALPHA.-TOCOPHEROL
  12. OSTEO BI-FLEX (CHONDROITIN SULFATE, GLUCOSAMINE HYDROCHLORIDE) [Concomitant]
  13. OXYGEN (OXYGEN) [Concomitant]
     Active Substance: OXYGEN
  14. ZINC (ZINC) [Concomitant]
  15. LASIX [Concomitant]
     Active Substance: FUROSEMIDE
  16. SYNTHROID [Concomitant]
     Active Substance: LEVOTHYROXINE SODIUM
  17. CLOTRIMAZOLE (CLOTRIMAZOLE) [Concomitant]
  18. VITAMIN D (ERGOCALCIFEROL) [Concomitant]
     Active Substance: ERGOCALCIFEROL

REACTIONS (4)
  - Fatigue [None]
  - Oxygen saturation decreased [None]
  - Decreased appetite [None]
  - Condition aggravated [None]

NARRATIVE: CASE EVENT DATE: 201409
